FAERS Safety Report 25204215 (Version 2)
Quarter: 2025Q2

REPORT INFORMATION
  Report Type: Spontaneous
  Country: SE (occurrence: SE)
  Receive Date: 20250416
  Receipt Date: 20250519
  Transmission Date: 20250717
  Serious: Yes (Hospitalization, Disabling)
  Sender: TEVA
  Company Number: None

PATIENT
  Age: 29 Year
  Sex: Female

DRUGS (2)
  1. GABAPENTIN [Suspect]
     Active Substance: GABAPENTIN
     Indication: Product used for unknown indication
     Route: 065
     Dates: start: 20240911, end: 20250224
  2. HYRIMOZ [Suspect]
     Active Substance: ADALIMUMAB-ADAZ
     Indication: Product used for unknown indication
     Route: 065

REACTIONS (4)
  - Confusional state [Recovering/Resolving]
  - Cognitive disorder [Unknown]
  - Fatigue [Unknown]
  - Demyelination [Recovered/Resolved with Sequelae]

NARRATIVE: CASE EVENT DATE: 20250101
